FAERS Safety Report 10862245 (Version 3)
Quarter: 2015Q2

REPORT INFORMATION
  Report Type: Spontaneous
  Country: US (occurrence: US)
  Receive Date: 20150224
  Receipt Date: 20150419
  Transmission Date: 20150821
  Serious: Yes (Death, Hospitalization)
  Sender: FDA-Public Use
  Company Number: US-B.I. PHARMACEUTICALS,INC./RIDGEFIELD-2015-BI-09103BP

PATIENT
  Sex: Female

DRUGS (2)
  1. MICARDIS [Suspect]
     Active Substance: TELMISARTAN
     Indication: PRODUCT USED FOR UNKNOWN INDICATION
     Dosage: 20 MG
     Route: 048
     Dates: end: 20141125
  2. MICARDIS [Suspect]
     Active Substance: TELMISARTAN
     Dosage: 0.5 ANZ
     Route: 048
     Dates: end: 20141125

REACTIONS (2)
  - Death [Fatal]
  - Product quality issue [Unknown]

NARRATIVE: CASE EVENT DATE: 201411
